FAERS Safety Report 5968095-1 (Version None)
Quarter: 2008Q4

REPORT INFORMATION
  Report Type: 
  Country: None (occurrence: None)
  Receive Date: 20081121
  Receipt Date: 20081111
  Transmission Date: 20090506
  Serious: No
  Sender: FDA-Public Use
  Company Number: 08H-087-0315180-00

PATIENT
  Age: 73 Year
  Sex: Male
  Weight: 70 kg

DRUGS (15)
  1. PRECEDEX [Suspect]
     Indication: SEDATION
     Dosage: 0.3 MCG/KG/HR, CONTINUOUS, INTRAVENOUS
     Route: 042
     Dates: start: 20070806, end: 20070806
  2. ASPIRIN [Concomitant]
  3. CANDESARTAN CILEXETIL [Concomitant]
  4. NICORANDIL (NICORANDIL) [Concomitant]
  5. FAMOTIDINE [Concomitant]
  6. MIDAZOLAM HCL [Concomitant]
  7. FENTANYL CITRATE [Concomitant]
  8. REMIFENTANIL HYDROCHLORIDE (REMIFENTANIL HYDROCHLORIDE) [Concomitant]
  9. VECURONIUM BROMIDE [Concomitant]
  10. DOPAMINE HDROCHLORIDE (DOPAMINE HYDROCHLORIDE) [Concomitant]
  11. DOBUTAMINE HCL [Concomitant]
  12. NICORANDIL (NICORANDIL) [Concomitant]
  13. NITROGLYCERIN [Concomitant]
  14. HEPARIN SODIUM [Concomitant]
  15. PROTAMINE SULFATE [Concomitant]

REACTIONS (4)
  - ASPARTATE AMINOTRANSFERASE INCREASED [None]
  - BLOOD ALBUMIN DECREASED [None]
  - CONDITION AGGRAVATED [None]
  - PROTHROMBIN TIME PROLONGED [None]
